FAERS Safety Report 9137540 (Version 2)
Quarter: 2014Q1

REPORT INFORMATION
  Report Type: Spontaneous
  Country: US (occurrence: US)
  Receive Date: 20130219
  Receipt Date: 20140213
  Transmission Date: 20141002
  Serious: Yes (Hospitalization)
  Sender: FDA-Public Use
  Company Number: US-BRISTOL-MYERS SQUIBB COMPANY-17157454

PATIENT
  Age: 69 Year
  Sex: Male

DRUGS (6)
  1. ORENCIA [Suspect]
     Indication: RHEUMATOID ARTHRITIS
     Dosage: 4 UNITS OF 100MG, LAST INF: 16NOV12?2F71222,2G69084
     Route: 042
     Dates: start: 20120711, end: 20121105
  2. METHOTREXATE [Suspect]
     Dosage: 1DF=7 (UNITS NOT SPECIFIED).
  3. PREDNISONE [Suspect]
     Dosage: 1DF=20(UNITS NOT SPECIFIED).
  4. FLOMAX [Concomitant]
  5. METFORMIN [Concomitant]
  6. FOLIC ACID [Concomitant]

REACTIONS (2)
  - Viral infection [Unknown]
  - Sepsis [Unknown]
